FAERS Safety Report 4973059-0 (Version None)
Quarter: 2006Q2

REPORT INFORMATION
  Report Type: 
  Country: None (occurrence: None)
  Receive Date: 20060407
  Receipt Date: 20060330
  Transmission Date: 20061013
  Serious: Yes (Other)
  Sender: FDA-Public Use
  Company Number: GBWYE522231MAR06

PATIENT
  Age: 34 Year
  Sex: Female

DRUGS (1)
  1. EFFEXOR XR [Suspect]
     Dosage: HIGH DOSE

REACTIONS (2)
  - AGGRESSION [None]
  - EUPHORIC MOOD [None]
